FAERS Safety Report 10377660 (Version 1)
Quarter: 2014Q3

REPORT INFORMATION
  Report Type: Spontaneous
  Country: US (occurrence: None)
  Receive Date: 20140811
  Receipt Date: 20140811
  Transmission Date: 20150326
  Serious: Yes (Other)
  Sender: FDA-Public Use
  Company Number: None

PATIENT
  Age: 88 Year
  Sex: Female

DRUGS (2)
  1. TRAMADOL [Concomitant]
     Active Substance: TRAMADOL
  2. HUMIRA [Suspect]
     Active Substance: ADALIMUMAB
     Route: 058
     Dates: start: 20130521

REACTIONS (1)
  - Staphylococcal infection [None]

NARRATIVE: CASE EVENT DATE: 20140808
